FAERS Safety Report 6369942-4 (Version None)
Quarter: 2009Q3

REPORT INFORMATION
  Report Type: 
  Country: None (occurrence: None)
  Receive Date: 20090923
  Receipt Date: 20070323
  Transmission Date: 20100115
  Serious: Yes (Hospitalization, Other)
  Sender: FDA-Public Use
  Company Number: US-ASTRAZENECA-2006UW08103

PATIENT
  Age: 18931 Day
  Sex: Female
  Weight: 95.7 kg

DRUGS (15)
  1. SEROQUEL [Suspect]
     Indication: INSOMNIA
     Dosage: 25-100 MG
     Route: 048
     Dates: start: 20020101
  2. XANAX [Concomitant]
     Dosage: 0.5 MG 1 TID, 3-4 DAILY AS NEEDED, 2-3 Q DAY
     Route: 065
  3. PROTONIX [Concomitant]
     Route: 065
  4. EFFEXOR XR [Concomitant]
     Dosage: 37.5-150 MG
     Route: 065
  5. LITHOBID [Concomitant]
     Route: 065
  6. ASPIRIN [Concomitant]
     Dosage: 81 MG Q.DAY, EVERY AM, DAILY
     Route: 065
  7. ADVIL [Concomitant]
     Dosage: ONCE A DAY, 200 MG PRN
     Route: 065
  8. PAXIL CR [Concomitant]
     Dosage: 25 MG 2 QHS, 2 Q-HOURS OF SLEEP
     Route: 065
  9. TRAZODONE [Concomitant]
     Route: 065
  10. METFORMIN HCL [Concomitant]
     Dosage: 500 MG 1 TAB PO Q DAY, DAILY
     Route: 065
  11. CLONAZEPAM [Concomitant]
     Dosage: 1 MG, 2 MG 1 TAB PO
     Route: 065
  12. FLUOXETINE [Concomitant]
     Route: 065
  13. LAMOTRIGINE [Concomitant]
     Route: 065
  14. ACETAMINOPHEN [Concomitant]
     Route: 065
  15. MAGNESIUM HYDROXIDE TAB [Concomitant]
     Dosage: 30 ML UDC
     Route: 065

REACTIONS (15)
  - ANXIETY [None]
  - ANXIETY DISORDER [None]
  - COLON POLYPECTOMY [None]
  - DEPENDENT PERSONALITY DISORDER [None]
  - DIARRHOEA [None]
  - ERYTHEMA [None]
  - FEELING ABNORMAL [None]
  - MAJOR DEPRESSION [None]
  - NORMAL TENSION GLAUCOMA [None]
  - PARAESTHESIA [None]
  - POST-TRAUMATIC STRESS DISORDER [None]
  - SCHIZOPHRENIA [None]
  - SUICIDAL IDEATION [None]
  - TEARFULNESS [None]
  - WEIGHT INCREASED [None]
